FAERS Safety Report 20617625 (Version 1)
Quarter: 2022Q1

REPORT INFORMATION
  Report Type: Spontaneous
  Country: US (occurrence: US)
  Receive Date: 20220321
  Receipt Date: 20220321
  Transmission Date: 20220423
  Serious: No
  Sender: FDA-Public Use
  Company Number: US-Santen Inc-2021-USA-010088

PATIENT
  Age: 70 Year
  Sex: Female
  Weight: 79.450 kg

DRUGS (2)
  1. FLAREX [Suspect]
     Active Substance: FLUOROMETHOLONE ACETATE
     Indication: Dry eye
     Dosage: 1 DROP, 3X/DAY IN EACH EYE
     Route: 047
     Dates: start: 20210622, end: 20210622
  2. FLAREX [Suspect]
     Active Substance: FLUOROMETHOLONE ACETATE
     Dosage: 1 DROP, 3X/DAY IN EACH EYE
     Route: 047
     Dates: start: 20210625

REACTIONS (5)
  - Instillation site pain [Recovered/Resolved]
  - Off label use [Not Recovered/Not Resolved]
  - Product delivery mechanism issue [Recovered/Resolved]
  - Incorrect dose administered by product [Recovered/Resolved]
  - Intentional dose omission [Recovered/Resolved]

NARRATIVE: CASE EVENT DATE: 20210622
